FAERS Safety Report 19790342 (Version 1)
Quarter: 2021Q3

REPORT INFORMATION
  Report Type: Spontaneous
  Country: US (occurrence: US)
  Receive Date: 20210906
  Receipt Date: 20210906
  Transmission Date: 20211014
  Serious: No
  Sender: FDA-Public Use
  Company Number: US-JNJFOC-20210846258

PATIENT
  Age: 40 Year
  Sex: Male

DRUGS (5)
  1. MAGNESIUM [Concomitant]
     Active Substance: MAGNESIUM
     Indication: CHEST PAIN
     Route: 065
     Dates: start: 20210811
  2. MAGNESIUM [Concomitant]
     Active Substance: MAGNESIUM
     Indication: ANXIETY
  3. MOTRIN [Suspect]
     Active Substance: IBUPROFEN
     Indication: ANXIETY
  4. MOTRIN [Suspect]
     Active Substance: IBUPROFEN
     Indication: CHEST PAIN
     Route: 065
     Dates: start: 20210811
  5. COVID?19 VACCINE [Concomitant]
     Indication: PRODUCT USED FOR UNKNOWN INDICATION
     Route: 065
     Dates: start: 20210730

REACTIONS (2)
  - Chest pain [Not Recovered/Not Resolved]
  - Product use in unapproved indication [Unknown]

NARRATIVE: CASE EVENT DATE: 202108
